FAERS Safety Report 5219570-9 (Version None)
Quarter: 2007Q1

REPORT INFORMATION
  Report Type: 
  Country: None (occurrence: None)
  Receive Date: 20070124
  Receipt Date: 20070124
  Transmission Date: 20070707
  Serious: Yes (Other)
  Sender: FDA-Public Use
  Company Number: None

PATIENT
  Age: 37 Year
  Sex: Female
  Weight: 71.6683 kg

DRUGS (1)
  1. LEVOFLOXACIN [Suspect]
     Indication: PHARYNGITIS
     Dosage: 1 DAILY PO
     Route: 048
     Dates: start: 20070101

REACTIONS (10)
  - ANXIETY [None]
  - DECREASED APPETITE [None]
  - EMOTIONAL DISORDER [None]
  - FEAR [None]
  - FEELING ABNORMAL [None]
  - MENTAL DISORDER [None]
  - PALPITATIONS [None]
  - PANIC ATTACK [None]
  - RESTLESSNESS [None]
  - STOMACH DISCOMFORT [None]
